FAERS Safety Report 17750253 (Version 4)
Quarter: 2020Q2

REPORT INFORMATION
  Report Type: Spontaneous
  Country: US (occurrence: US)
  Receive Date: 20200506
  Receipt Date: 20200609
  Transmission Date: 20200714
  Serious: No
  Sender: FDA-Public Use
  Company Number: US-PFIZER INC-2020179609

PATIENT
  Sex: Female

DRUGS (1)
  1. PREMARIN [Suspect]
     Active Substance: ESTROGENS, CONJUGATED
     Dosage: 2 G, 2X/WEEK

REACTIONS (9)
  - Off label use [Unknown]
  - Product prescribing error [Unknown]
  - Vulvovaginal burning sensation [Unknown]
  - Drug ineffective [Unknown]
  - Bladder disorder [Unknown]
  - Contraindicated product administered [Unknown]
  - Vulvovaginal pruritus [Unknown]
  - Hypoacusis [Unknown]
  - Disease recurrence [Unknown]
